FAERS Safety Report 9299383 (Version 2)
Quarter: 2013Q4

REPORT INFORMATION
  Report Type: Spontaneous
  Country: US (occurrence: US)
  Receive Date: 20130520
  Receipt Date: 20131108
  Transmission Date: 20140711
  Serious: Yes (Hospitalization)
  Sender: FDA-Public Use
  Company Number: US-B.I. PHARMACEUTICALS,INC./RIDGEFIELD-2013-BI-13914BP

PATIENT
  Age: 82 Year
  Sex: Male
  Weight: 92.53 kg

DRUGS (9)
  1. PRADAXA [Suspect]
     Indication: ANTICOAGULANT THERAPY
     Dosage: 150 MG
     Dates: start: 20110404, end: 20120306
  2. PRADAXA [Suspect]
     Indication: ATRIAL FIBRILLATION
  3. AVANDIA [Concomitant]
     Dates: start: 2007
  4. METFORMIN [Concomitant]
     Dates: start: 2009
  5. ASPIRIN [Concomitant]
     Dates: start: 2008
  6. POTASSIUM [Concomitant]
     Dates: start: 2003
  7. CARDIZEM [Concomitant]
     Dates: start: 2009
  8. FISH OIL [Concomitant]
     Dates: start: 2006
  9. FUROSEMIDE [Concomitant]
     Dates: start: 2003

REACTIONS (2)
  - Gastrointestinal haemorrhage [Unknown]
  - Anaemia [Unknown]
